FAERS Safety Report 5092369-2 (Version None)
Quarter: 2006Q3

REPORT INFORMATION
  Report Type: 
  Country: None (occurrence: None)
  Receive Date: 20060825
  Receipt Date: 20060807
  Transmission Date: 20061208
  Serious: Yes (Hospitalization, Other)
  Sender: FDA-Public Use
  Company Number: US200607001219

PATIENT
  Sex: Male
  Weight: 55.8 kg

DRUGS (2)
  1. ZYPREXA [Suspect]
     Indication: DEPRESSION
     Dosage: 5 MG, DAILY (1/D),
     Dates: start: 20030623, end: 20040601
  2. PAXIL [Concomitant]

REACTIONS (8)
  - BLOOD CHOLESTEROL INCREASED [None]
  - CEREBRAL THROMBOSIS [None]
  - CONVULSION [None]
  - DIABETES MELLITUS NON-INSULIN-DEPENDENT [None]
  - MUMPS [None]
  - PANCREATITIS [None]
  - VISION BLURRED [None]
  - WEIGHT DECREASED [None]
